FAERS Safety Report 9181295 (Version 1)
Quarter: 2013Q1

REPORT INFORMATION
  Report Type: Spontaneous
  Country: US (occurrence: None)
  Receive Date: 20130322
  Receipt Date: 20130322
  Transmission Date: 20140127
  Serious: Yes (Other)
  Sender: FDA-Public Use
  Company Number: None

PATIENT
  Age: 48 Year
  Sex: Female
  Weight: 51.71 kg

DRUGS (1)
  1. AVASTIN [Suspect]

REACTIONS (4)
  - Corneal abrasion [None]
  - Conjunctivitis [None]
  - Corneal infection [None]
  - Scar [None]
